FAERS Safety Report 25300262 (Version 1)
Quarter: 2025Q2

REPORT INFORMATION
  Report Type: Spontaneous
  Country: CN (occurrence: CN)
  Receive Date: 20250512
  Receipt Date: 20250512
  Transmission Date: 20250717
  Serious: Yes (Other)
  Sender: Kenvue
  Company Number: CN-KENVUE-20250502630

PATIENT

DRUGS (3)
  1. CHILDRENS MOTRIN [Suspect]
     Active Substance: IBUPROFEN
     Indication: Pyrexia
     Dosage: 10 MILLILITER, ONCE A DAY
     Route: 048
     Dates: start: 20250416
  2. DEXAMETHASONE SODIUM PHOSPHATE [Suspect]
     Active Substance: DEXAMETHASONE SODIUM PHOSPHATE
     Indication: Antiinflammatory therapy
     Dosage: 5 MILLIGRAM, ONCE A DAY
     Route: 041
     Dates: start: 20250416
  3. DEXTROSE [Suspect]
     Active Substance: DEXTROSE MONOHYDRATE
     Indication: Vehicle solution use
     Dosage: 100 MILLILITER OF 5%, ONCE A DAY
     Route: 041
     Dates: start: 20250416

REACTIONS (4)
  - Product administered to patient of inappropriate age [Unknown]
  - Eye swelling [Recovering/Resolving]
  - Vision blurred [Recovering/Resolving]
  - Drug hypersensitivity [Recovering/Resolving]

NARRATIVE: CASE EVENT DATE: 20250416
